FAERS Safety Report 16726358 (Version 1)
Quarter: 2019Q3

REPORT INFORMATION
  Report Type: Spontaneous
  Country: BR (occurrence: BR)
  Receive Date: 20190821
  Receipt Date: 20190821
  Transmission Date: 20191005
  Serious: Yes (Other)
  Sender: FDA-Public Use
  Company Number: BR-GLAXOSMITHKLINE-BR2019AMR121509

PATIENT
  Sex: Male
  Weight: 82 kg

DRUGS (1)
  1. BENLYSTA [Suspect]
     Active Substance: BELIMUMAB
     Indication: SYSTEMIC LUPUS ERYTHEMATOSUS
     Dosage: UNK
     Dates: start: 20181119

REACTIONS (5)
  - Rheumatoid arthritis [Unknown]
  - Product availability issue [Unknown]
  - Pain [Unknown]
  - Wound [Unknown]
  - Product dose omission [Unknown]
